FAERS Safety Report 5701462-X (Version None)
Quarter: 2008Q2

REPORT INFORMATION
  Report Type: 
  Country: None (occurrence: None)
  Receive Date: 20080410
  Receipt Date: 20080404
  Transmission Date: 20081010
  Serious: Yes (Hospitalization)
  Sender: FDA-Public Use
  Company Number: US-GILEAD-2008-0015429

PATIENT
  Sex: Male

DRUGS (10)
  1. LETAIRIS [Suspect]
     Indication: PULMONARY HYPERTENSION
     Route: 048
     Dates: start: 20070901, end: 20071101
  2. LETAIRIS [Suspect]
     Route: 048
     Dates: start: 20071101
  3. INSULIN [Concomitant]
     Indication: TYPE 1 DIABETES MELLITUS
  4. COUMADIN [Concomitant]
     Indication: ATRIAL FIBRILLATION
  5. COUMADIN [Concomitant]
     Indication: PULMONARY HYPERTENSION
  6. LASIX [Concomitant]
  7. VERAPAMIL [Concomitant]
  8. METOPROLOL TARTRATE [Concomitant]
  9. HYDRALAZINE HCL [Concomitant]
  10. REVATIO [Concomitant]

REACTIONS (3)
  - ANAEMIA [None]
  - HAEMATOCHEZIA [None]
  - OEDEMA PERIPHERAL [None]
